FAERS Safety Report 19876112 (Version 1)
Quarter: 2021Q3

REPORT INFORMATION
  Report Type: Report from Study
  Country: US (occurrence: US)
  Receive Date: 20210924
  Receipt Date: 20210924
  Transmission Date: 20211014
  Serious: Yes (Other)
  Sender: FDA-Public Use
  Company Number: US-TAIHO ONCOLOGY  INC-EU-2021-03020

PATIENT
  Age: 59 Year
  Sex: Male

DRUGS (8)
  1. NYSTATIN. [Concomitant]
     Active Substance: NYSTATIN
  2. ELIQUIS [Concomitant]
     Active Substance: APIXABAN
  3. METOPROLOL. [Concomitant]
     Active Substance: METOPROLOL
  4. LONSURF [Suspect]
     Active Substance: TIPIRACIL HYDROCHLORIDE\TRIFLURIDINE
     Indication: COLON CANCER
     Dosage: CURRENT CYCLE UNKNOWN
     Route: 048
     Dates: start: 20210730
  5. MARINOL [Concomitant]
     Active Substance: DRONABINOL
  6. ALBUTEROL. [Concomitant]
     Active Substance: ALBUTEROL
  7. BACLOFEN. [Concomitant]
     Active Substance: BACLOFEN
  8. CALCIUM [Concomitant]
     Active Substance: CALCIUM

REACTIONS (2)
  - Gingival bleeding [Not Recovered/Not Resolved]
  - Dry mouth [Not Recovered/Not Resolved]

NARRATIVE: CASE EVENT DATE: 20210917
